FAERS Safety Report 7035870-4 (Version None)
Quarter: 2010Q4

REPORT INFORMATION
  Report Type: 
  Country: None (occurrence: None)
  Receive Date: 20101008
  Receipt Date: 20100929
  Transmission Date: 20110411
  Serious: Yes (Hospitalization)
  Sender: FDA-Public Use
  Company Number: GXKR2010SE11102

PATIENT
  Sex: Male

DRUGS (11)
  1. CEFADROXIL SANDOZ (NGX) [Suspect]
     Indication: SKIN INFECTION
     Dosage: 1000 MG/DAY
     Route: 048
     Dates: start: 20100706, end: 20100715
  2. WARAN [Interacting]
     Indication: ATRIAL FIBRILLATION
     Dosage: UNK
     Route: 048
     Dates: end: 20100717
  3. SELOKEN ZOC [Concomitant]
  4. METFORMIN [Concomitant]
  5. SIMVASTATIN [Concomitant]
  6. LOCOID [Concomitant]
  7. FUROSEMID ^RECIP^ [Concomitant]
  8. PANOCOD [Concomitant]
  9. ELOCON [Concomitant]
  10. TRIATEC [Concomitant]
  11. CANODERM [Concomitant]

REACTIONS (5)
  - CARDIOVASCULAR DISORDER [None]
  - DRUG INTERACTION [None]
  - GASTRIC ULCER HAEMORRHAGE [None]
  - HAEMATEMESIS [None]
  - MELAENA [None]
